FAERS Safety Report 12612012 (Version 1)
Quarter: 2016Q3

REPORT INFORMATION
  Report Type: Spontaneous
  Country: FR (occurrence: FR)
  Receive Date: 20160801
  Receipt Date: 20160801
  Transmission Date: 20161109
  Serious: Yes (Hospitalization)
  Sender: FDA-Public Use
  Company Number: FR-ASCEND THERAPEUTICS-1055745

PATIENT
  Age: 44 Year
  Sex: Female

DRUGS (2)
  1. ESTROGEL [Suspect]
     Active Substance: ESTRADIOL
     Route: 062
     Dates: end: 20160610
  2. ANDROCUR [Concomitant]
     Active Substance: CYPROTERONE ACETATE
     Route: 048
     Dates: end: 20160610

REACTIONS (2)
  - Product use issue [None]
  - Cerebral infarction [Unknown]

NARRATIVE: CASE EVENT DATE: 20160610
